FAERS Safety Report 23342456 (Version 2)
Quarter: 2024Q1

REPORT INFORMATION
  Report Type: Spontaneous
  Country: CN (occurrence: CN)
  Receive Date: 20231227
  Receipt Date: 20240103
  Transmission Date: 20240410
  Serious: Yes (Hospitalization)
  Sender: FDA-Public Use
  Company Number: CN-BAYER-2023A185330

PATIENT
  Age: 40 Year
  Sex: Female
  Weight: 81 kg

DRUGS (3)
  1. GLUCOBAY [Suspect]
     Active Substance: ACARBOSE
     Indication: Diabetes mellitus
     Dosage: 1 DF, TID
     Route: 048
     Dates: start: 20230907, end: 20231219
  2. METOPROLOL SUCCINATE [Concomitant]
     Active Substance: METOPROLOL SUCCINATE
     Dosage: UNK
     Dates: start: 20231219
  3. FELODIPINE [Concomitant]
     Active Substance: FELODIPINE
     Dosage: UNK
     Dates: start: 20231219

REACTIONS (17)
  - Drug-induced liver injury [Recovering/Resolving]
  - Pollakiuria [Recovering/Resolving]
  - Micturition urgency [Recovering/Resolving]
  - Abdominal distension [Recovering/Resolving]
  - Gastrooesophageal reflux disease [Recovering/Resolving]
  - Dyspepsia [Recovering/Resolving]
  - Nausea [Recovering/Resolving]
  - Asthenia [Recovering/Resolving]
  - Decreased appetite [None]
  - Hepatic steatosis [None]
  - Dry mouth [Recovering/Resolving]
  - Dysgeusia [Recovering/Resolving]
  - Dizziness [Recovering/Resolving]
  - Poor quality sleep [None]
  - Faeces soft [Recovered/Resolved]
  - Abdominal tenderness [None]
  - Frequent bowel movements [Recovered/Resolved]

NARRATIVE: CASE EVENT DATE: 20231101
